FAERS Safety Report 17376437 (Version 1)
Quarter: 2020Q1

REPORT INFORMATION
  Report Type: Spontaneous
  Country: US (occurrence: US)
  Receive Date: 20200205
  Receipt Date: 20200205
  Transmission Date: 20200409
  Serious: Yes (Hospitalization)
  Sender: FDA-Public Use
  Company Number: None

PATIENT
  Age: 71 Year
  Sex: Male
  Weight: 114.57 kg

DRUGS (4)
  1. SUTENT [Suspect]
     Active Substance: SUNITINIB MALATE
     Indication: RENAL CANCER
     Route: 048
     Dates: start: 20180123, end: 20200205
  2. SIMVASTATIN. [Concomitant]
     Active Substance: SIMVASTATIN
  3. OMEPRAZOLE. [Concomitant]
     Active Substance: OMEPRAZOLE
  4. LISINOPRIL. [Concomitant]
     Active Substance: LISINOPRIL

REACTIONS (6)
  - Oliguria [None]
  - Hyperkalaemia [None]
  - Dyspnoea [None]
  - Chronic obstructive pulmonary disease [None]
  - Acute kidney injury [None]
  - Chest pain [None]

NARRATIVE: CASE EVENT DATE: 20200126
